FAERS Safety Report 20363585 (Version 2)
Quarter: 2022Q1

REPORT INFORMATION
  Report Type: Spontaneous
  Country: JP (occurrence: JP)
  Receive Date: 20220121
  Receipt Date: 20220328
  Transmission Date: 20220423
  Serious: Yes (Hospitalization, Other)
  Sender: FDA-Public Use
  Company Number: JP-DSJP-DSJ-2022-101646

PATIENT
  Sex: Female
  Weight: 39.6 kg

DRUGS (1)
  1. ENHERTU [Suspect]
     Active Substance: FAM-TRASTUZUMAB DERUXTECAN-NXKI
     Indication: HER2 positive breast cancer
     Dosage: 5.4 MG/KG, SINGLE
     Route: 041
     Dates: start: 20210715, end: 20210715

REACTIONS (3)
  - Platelet count decreased [Recovered/Resolved]
  - Febrile neutropenia [Recovered/Resolved]
  - Melaena [Unknown]

NARRATIVE: CASE EVENT DATE: 20210722
